FAERS Safety Report 15003876 (Version 3)
Quarter: 2018Q3

REPORT INFORMATION
  Report Type: Report from Study
  Country: US (occurrence: US)
  Receive Date: 20180613
  Receipt Date: 20180817
  Transmission Date: 20181010
  Serious: Yes (Other)
  Sender: FDA-Public Use
  Company Number: US-UCBSA-2018025288

PATIENT
  Age: 57 Year
  Sex: Male
  Weight: 106 kg

DRUGS (2)
  1. VIMPAT [Suspect]
     Active Substance: LACOSAMIDE
     Indication: PARTIAL SEIZURES
     Dosage: 100 MG, 2X/DAY (BID)
     Route: 048
     Dates: start: 2004, end: 201806
  2. LEVETIRACETAM. [Suspect]
     Active Substance: LEVETIRACETAM
     Indication: PARTIAL SEIZURES
     Dosage: 2000 MG IN THE AM AND 1000 MG IN THE PM
     Route: 048
     Dates: start: 2004

REACTIONS (8)
  - Petit mal epilepsy [Recovered/Resolved]
  - Ear injury [Unknown]
  - Seizure [Recovered/Resolved]
  - Ulcer [Not Recovered/Not Resolved]
  - Scratch [Unknown]
  - Intentional product misuse [Unknown]
  - Generalised tonic-clonic seizure [Recovered/Resolved]
  - Head injury [Not Recovered/Not Resolved]

NARRATIVE: CASE EVENT DATE: 2004
